FAERS Safety Report 7255875-8 (Version None)
Quarter: 2011Q1

REPORT INFORMATION
  Report Type: 
  Country: None (occurrence: None)
  Receive Date: 20110129
  Receipt Date: 20100504
  Transmission Date: 20110831
  Serious: No
  Sender: FDA-Public Use
  Company Number: US-ABBOTT-10P-163-0637255-00

PATIENT
  Sex: Female

DRUGS (4)
  1. HUMIRA [Suspect]
     Indication: RHEUMATOID ARTHRITIS
     Dates: start: 20090101
  2. HUMIRA [Suspect]
     Indication: RHEUMATOID ARTHRITIS
     Dates: start: 20090101, end: 20090101
  3. HUMIRA [Suspect]
     Indication: OSTEOARTHRITIS
  4. HUMIRA [Suspect]
     Indication: OSTEOARTHRITIS

REACTIONS (5)
  - DRY MOUTH [None]
  - RASH PRURITIC [None]
  - HEART RATE INCREASED [None]
  - PEMPHIGOID [None]
  - AUTOIMMUNE DISORDER [None]
